FAERS Safety Report 9502907 (Version 1)
Quarter: 2013Q1

REPORT INFORMATION
  Report Type: Spontaneous
  Country: US (occurrence: None)
  Receive Date: 20130225
  Receipt Date: 20130225
  Transmission Date: 20140127
  Serious: No
  Sender: FDA-Public Use
  Company Number: 366511

PATIENT
  Age: 60 Year
  Sex: Male
  Weight: 108.8 kg

DRUGS (1)
  1. VICTOZA [Suspect]
     Indication: TYPE 2 DIABETES MELLITUS
     Route: 058
     Dates: start: 201211, end: 201211

REACTIONS (3)
  - Flatulence [None]
  - Constipation [None]
  - Blood glucose decreased [None]
